FAERS Safety Report 26045711 (Version 1)
Quarter: 2025Q4

REPORT INFORMATION
  Report Type: Spontaneous
  Country: US (occurrence: None)
  Receive Date: 20251113
  Receipt Date: 20251113
  Transmission Date: 20260118
  Serious: Yes (Death)
  Sender: FDA-CTU
  Company Number: None

PATIENT
  Age: 62 Year
  Sex: Male
  Weight: 85.1 kg

DRUGS (1)
  1. YESCARTA [Suspect]
     Active Substance: AXICABTAGENE CILOLEUCEL
     Indication: Diffuse large B-cell lymphoma
     Dosage: FREQUENCY : ONCE;?
     Route: 042
     Dates: start: 20251022, end: 20251022

REACTIONS (14)
  - Mental status changes [None]
  - Seizure like phenomena [None]
  - Haemorrhage intracranial [None]
  - Thrombocytopenia [None]
  - Coagulopathy [None]
  - Pneumothorax [None]
  - Haemodynamic instability [None]
  - Ejection fraction decreased [None]
  - Pulseless electrical activity [None]
  - Cardiac arrest [None]
  - Ventricular fibrillation [None]
  - Pupil fixed [None]
  - Respiratory arrest [None]
  - Cardiopulmonary failure [None]

NARRATIVE: CASE EVENT DATE: 20251110
